FAERS Safety Report 5128516-3 (Version None)
Quarter: 2006Q4

REPORT INFORMATION
  Report Type: 
  Country: None (occurrence: None)
  Receive Date: 20061011
  Receipt Date: 20060302
  Transmission Date: 20070319
  Serious: Yes (Death, Hospitalization)
  Sender: FDA-Public Use
  Company Number: 220182

PATIENT
  Age: 68 Year
  Sex: Female
  Weight: 86 kg

DRUGS (3)
  1. AVASTIN [Suspect]
     Indication: PANCREATIC CARCINOMA
     Dosage: 840 MG, DAYS 1+15,
     Dates: start: 20051027, end: 20051207
  2. GEMCITABINE [Suspect]
     Indication: PANCREATIC CARCINOMA
     Dosage: 1920 MG, DAYS 1+15,
     Dates: start: 20051027, end: 20051207
  3. OXALIPLATIN [Suspect]
     Indication: PANCREATIC CARCINOMA
     Dosage: 190 MG, DAYS 1+15,
     Dates: start: 20051027, end: 20051207

REACTIONS (9)
  - ANOREXIA [None]
  - BLOOD CALCIUM DECREASED [None]
  - BLOOD CHLORIDE DECREASED [None]
  - BLOOD POTASSIUM DECREASED [None]
  - BLOOD SODIUM DECREASED [None]
  - DISEASE PROGRESSION [None]
  - FAILURE TO THRIVE [None]
  - ORAL INTAKE REDUCED [None]
  - STOMATITIS [None]
